FAERS Safety Report 23275837 (Version 3)
Quarter: 2024Q1

REPORT INFORMATION
  Report Type: Spontaneous
  Country: US (occurrence: US)
  Receive Date: 20231208
  Receipt Date: 20240226
  Transmission Date: 20240410
  Serious: Yes (Hospitalization)
  Sender: FDA-Public Use
  Company Number: US-BRISTOL-MYERS SQUIBB COMPANY-2023-174432

PATIENT
  Age: 84 Year
  Sex: Male
  Weight: 63.5 kg

DRUGS (1)
  1. REVLIMID [Suspect]
     Active Substance: LENALIDOMIDE
     Indication: Plasma cell myeloma
     Dosage: 21D ON 7D OFF
     Route: 048
     Dates: start: 20200901

REACTIONS (4)
  - Fall [Unknown]
  - Joint dislocation [Unknown]
  - Diarrhoea [Recovering/Resolving]
  - Weight decreased [Recovering/Resolving]

NARRATIVE: CASE EVENT DATE: 20231124
